FAERS Safety Report 24769532 (Version 4)
Quarter: 2025Q4

REPORT INFORMATION
  Report Type: Report from Study
  Country: US (occurrence: US)
  Receive Date: 20241224
  Receipt Date: 20251209
  Transmission Date: 20260118
  Serious: Yes (Other)
  Sender: ABBVIE
  Company Number: US-ABBVIE-6056688

PATIENT
  Age: 55 Year
  Sex: Male

DRUGS (1)
  1. SKYRIZI [Suspect]
     Active Substance: RISANKIZUMAB-RZAA
     Indication: Psoriasis
     Route: 058
     Dates: start: 20240314

REACTIONS (8)
  - Hip arthroplasty [Unknown]
  - Pruritus [Unknown]
  - Skin irritation [Unknown]
  - Hip arthroplasty [Recovered/Resolved]
  - Arthralgia [Unknown]
  - Hypoaesthesia [Recovering/Resolving]
  - Paraesthesia [Unknown]
  - Nerve injury [Not Recovered/Not Resolved]

NARRATIVE: CASE EVENT DATE: 20240101
